FAERS Safety Report 7658343-4 (Version None)
Quarter: 2011Q3

REPORT INFORMATION
  Report Type: 
  Country: None (occurrence: None)
  Receive Date: 20110804
  Receipt Date: 20110804
  Transmission Date: 20111222
  Serious: Yes (Hospitalization)
  Sender: FDA-Public Use
  Company Number: None

PATIENT
  Age: 38 Year
  Sex: Male
  Weight: 64 kg

DRUGS (6)
  1. PRILOSEC [Concomitant]
  2. TESTOSTERONE [Concomitant]
  3. LITHIUM CARBONATE [Suspect]
     Indication: BIPOLAR DISORDER
     Dosage: 300 MG BID PO; 600 MG QHS PO
     Route: 048
     Dates: start: 20100818, end: 20110701
  4. VICODIN [Concomitant]
  5. EFFEXOR XR [Concomitant]
  6. KLONOPIN [Concomitant]

REACTIONS (5)
  - RENAL FAILURE ACUTE [None]
  - NEPHROGENIC DIABETES INSIPIDUS [None]
  - RESPIRATORY DISTRESS [None]
  - HYPOVOLAEMIA [None]
  - MENTAL STATUS CHANGES [None]
